FAERS Safety Report 17190038 (Version 1)
Quarter: 2019Q4

REPORT INFORMATION
  Report Type: Spontaneous
  Country: TR (occurrence: TR)
  Receive Date: 20191223
  Receipt Date: 20191223
  Transmission Date: 20200122
  Serious: Yes (Other)
  Sender: FDA-Public Use
  Company Number: TR-LUPIN PHARMACEUTICALS INC.-2019-08444

PATIENT
  Age: 71 Year
  Sex: Female

DRUGS (1)
  1. METRONIDAZOLE. [Suspect]
     Active Substance: METRONIDAZOLE
     Indication: PNEUMONIA
     Dosage: UNK
     Route: 042

REACTIONS (2)
  - Electrocardiogram QT prolonged [Recovered/Resolved]
  - Electrocardiogram T wave inversion [Recovered/Resolved]
